FAERS Safety Report 26057862 (Version 1)
Quarter: 2025Q4

REPORT INFORMATION
  Report Type: Spontaneous
  Country: US (occurrence: US)
  Receive Date: 20251118
  Receipt Date: 20251118
  Transmission Date: 20260117
  Serious: No
  Sender: TARO
  Company Number: US-TARO PHARMACEUTICALS USA INC.-2024TAR02853

PATIENT

DRUGS (3)
  1. MUPIROCIN [Suspect]
     Active Substance: MUPIROCIN
     Indication: Staphylococcal infection
     Dosage: UNK, OD AT NIGHT
     Route: 045
     Dates: start: 202404, end: 2024
  2. MUPIROCIN [Suspect]
     Active Substance: MUPIROCIN
     Dosage: UNK, BID
     Route: 061
     Dates: start: 2024, end: 2024
  3. MUPIROCIN [Suspect]
     Active Substance: MUPIROCIN
     Dosage: UNK, BID, 3X PER WEEK FOR 5 WEEKS TOTAL
     Route: 045
     Dates: start: 2024, end: 2024

REACTIONS (1)
  - Off label use [Unknown]
